FAERS Safety Report 25052540 (Version 1)
Quarter: 2025Q1

REPORT INFORMATION
  Report Type: Spontaneous
  Country: RU (occurrence: RU)
  Receive Date: 20250307
  Receipt Date: 20250307
  Transmission Date: 20250409
  Serious: Yes (Other)
  Sender: ELI LILLY AND COMPANY
  Company Number: RU-Merck Healthcare KGaA-2025010415

PATIENT
  Age: 49 Year
  Sex: Female

DRUGS (5)
  1. ERBITUX [Suspect]
     Active Substance: CETUXIMAB
     Indication: Anal cancer stage II
     Route: 065
     Dates: start: 20230707, end: 20230804
  2. ERBITUX [Suspect]
     Active Substance: CETUXIMAB
     Route: 065
     Dates: start: 20230902, end: 20240329
  3. ERBITUX [Suspect]
     Active Substance: CETUXIMAB
     Route: 065
     Dates: start: 20240412, end: 20240719
  4. IRINOTECAN [Concomitant]
     Active Substance: IRINOTECAN
     Indication: Anal cancer stage II
     Dates: start: 20230902, end: 20240329
  5. IRINOTECAN [Concomitant]
     Active Substance: IRINOTECAN
     Dates: start: 20230707, end: 20230804

REACTIONS (7)
  - Hydronephrosis [Unknown]
  - Fistula discharge [Unknown]
  - Stoma site complication [Unknown]
  - Malignant neoplasm progression [Unknown]
  - Asthenia [Unknown]
  - Diarrhoea [Unknown]
  - Off label use [Unknown]

NARRATIVE: CASE EVENT DATE: 20240801
